FAERS Safety Report 9109738 (Version 1)
Quarter: 2013Q1

REPORT INFORMATION
  Report Type: Spontaneous
  Country: BR (occurrence: BR)
  Receive Date: 20130222
  Receipt Date: 20130222
  Transmission Date: 20140127
  Serious: Yes (Other)
  Sender: FDA-Public Use
  Company Number: BR-BRISTOL-MYERS SQUIBB COMPANY-17392747

PATIENT
  Age: 82 Year
  Sex: Female

DRUGS (6)
  1. APROZIDE [Suspect]
     Indication: HYPERTENSION
     Dosage: 1DF:2 TABS?150 MG TABS?STARTED 3 YRS AGO
  2. LEVOTHYROXINE [Concomitant]
  3. EXELON [Concomitant]
  4. NEBILET [Concomitant]
  5. SIMVASTATIN [Concomitant]
  6. RISPERIDONE [Concomitant]

REACTIONS (3)
  - Dementia Alzheimer^s type [Not Recovered/Not Resolved]
  - Heart rate decreased [Recovered/Resolved]
  - Dizziness [Unknown]
